FAERS Safety Report 7885557-0 (Version None)
Quarter: 2011Q4

REPORT INFORMATION
  Report Type: 
  Country: None (occurrence: None)
  Receive Date: 20111102
  Receipt Date: 20110623
  Transmission Date: 20120403
  Serious: No
  Sender: FDA-Public Use
  Company Number: US-AMGEN-USASP2011032217

PATIENT
  Age: 62 Year
  Sex: Female
  Weight: 80.726 kg

DRUGS (12)
  1. MILK THISTLE [Concomitant]
  2. ENBREL [Suspect]
     Dosage: 50 MG, QWK
  3. ASA ARTHRITIS STRENGTH ASPIRIN [Concomitant]
     Dosage: 81 MG, UNK
  4. MULTIVITAMIN                       /00097801/ [Concomitant]
  5. NORCO [Concomitant]
     Dosage: 325 MG, UNK
  6. VITAMIN D [Concomitant]
     Dosage: 1000 UNIT, UNK
  7. LEVOTHYROXINE SODIUM [Concomitant]
     Dosage: 112 MCI/MUG, UNK
  8. FLAXSEED OIL [Suspect]
  9. VITAMIN E                          /00110501/ [Concomitant]
     Dosage: 1000 UNIT, UNK
  10. CINNAMON                           /01647501/ [Concomitant]
     Dosage: 500 MG, UNK
  11. VITAMIN C CHEW [Concomitant]
     Dosage: 250 MG, UNK
  12. FISH OIL [Concomitant]

REACTIONS (1)
  - TREMOR [None]
